FAERS Safety Report 8444888-6 (Version None)
Quarter: 2012Q2

REPORT INFORMATION
  Report Type: 
  Country: None (occurrence: None)
  Receive Date: 20120323
  Receipt Date: 20111027
  Transmission Date: 20120825
  Serious: Yes (Other)
  Sender: FDA-Public Use
  Company Number: 163-21880-11082128

PATIENT
  Age: 70 Year
  Sex: Male
  Weight: 97.977 kg

DRUGS (17)
  1. TOPROL-XL [Concomitant]
  2. ADVICOR (ADVICOR - SLOW RELEASE) (UNKNOWN) [Concomitant]
  3. METFORMIN HCL [Concomitant]
  4. CELEBREX [Concomitant]
  5. LYRICA (PREGABALIN) (UNKNOWN) [Concomitant]
  6. SAVELLA [Concomitant]
  7. BENTYL (DICYCLOVERINE HYDROCHLORIDE) (UNKNOWN) [Concomitant]
  8. DAVOCET-N (PROPACET) (UNKNOWN) [Concomitant]
  9. REVLIMID [Suspect]
     Indication: MULTIPLE MYELOMA
     Dosage: SEE IMAGE
     Route: 048
     Dates: start: 20110701
  10. REVLIMID [Suspect]
     Indication: MULTIPLE MYELOMA
     Dosage: SEE IMAGE
     Route: 048
     Dates: start: 20101101
  11. REVLIMID [Suspect]
     Indication: MULTIPLE MYELOMA
     Dosage: SEE IMAGE
     Route: 048
     Dates: start: 20101010
  12. REVLIMID [Suspect]
     Indication: MULTIPLE MYELOMA
     Dosage: SEE IMAGE
     Route: 048
     Dates: start: 20110301
  13. ASPIRIN [Concomitant]
  14. LOPID (GEMFIBROZIL) (UNKNOWN) [Concomitant]
  15. ZOMETA [Concomitant]
  16. ERYTHROMYCIN (ERYTHROMYCIN) (UNKNOWN) [Concomitant]
  17. HYZAAR (HYZAAR) (UNKNOWN) [Concomitant]

REACTIONS (2)
  - MULTIPLE MYELOMA [None]
  - HERPES ZOSTER [None]
